FAERS Safety Report 10650139 (Version 4)
Quarter: 2015Q1

REPORT INFORMATION
  Report Type: Report from Study
  Country: FR (occurrence: FR)
  Receive Date: 20141212
  Receipt Date: 20150310
  Transmission Date: 20150720
  Serious: Yes (Hospitalization, Other)
  Sender: FDA-Public Use
  Company Number: FR-AMGEN-FRACT2014058835

PATIENT
  Age: 66 Year
  Sex: Female
  Weight: 61 kg

DRUGS (18)
  1. SERETIDE [Concomitant]
     Active Substance: FLUTICASONE FUROATE\SALMETEROL XINAFOATE
     Dosage: 2 UNK, UNK
     Route: 050
  2. SEROPLEX [Concomitant]
     Active Substance: ESCITALOPRAM OXALATE
     Dosage: 5 MG, UNK
     Route: 048
     Dates: start: 20140511
  3. POLARAMINE [Concomitant]
     Active Substance: DEXCHLORPHENIRAMINE MALEATE
     Dosage: 1 UNK, UNK
     Route: 042
     Dates: start: 20140715, end: 20140722
  4. CYTARABINE. [Concomitant]
     Active Substance: CYTARABINE
     Dosage: 40 MG, UNK
     Route: 033
     Dates: start: 20140707, end: 20140707
  5. ORACILLINE                         /00001801/ [Concomitant]
     Active Substance: PENICILLIN V BENZATHINE
     Dosage: 1 UNK, UNK
     Route: 048
     Dates: start: 20140511
  6. PERFALGAN [Concomitant]
     Active Substance: ACETAMINOPHEN
     Dosage: 1 G, UNK
     Route: 042
     Dates: start: 20140715
  7. PREDNISOLONE. [Concomitant]
     Active Substance: PREDNISOLONE
     Dosage: 15 MG, UNK
     Route: 037
     Dates: start: 20140707, end: 20140707
  8. ZELITREX [Concomitant]
     Active Substance: VALACYCLOVIR HYDROCHLORIDE
     Dosage: 500 MG, UNK
     Route: 048
     Dates: start: 20140215
  9. METHOTREXATE [Concomitant]
     Active Substance: METHOTREXATE
     Dosage: 15 MG, UNK
     Route: 037
     Dates: start: 20140707, end: 20140707
  10. DEXAMETHASONE. [Concomitant]
     Active Substance: DEXAMETHASONE
     Dosage: 20 MG, UNK
     Dates: start: 20140715, end: 20140801
  11. BACTRIM [Concomitant]
     Active Substance: SULFAMETHOXAZOLE\TRIMETHOPRIM
     Dosage: 1 UNK, UNK
     Route: 048
     Dates: start: 20140511
  12. LEDERFOLINE [Concomitant]
     Active Substance: LEUCOVORIN CALCIUM
     Dosage: 25 MG, UNK
     Route: 048
     Dates: start: 20140511
  13. BLINATUMOMAB [Suspect]
     Active Substance: BLINATUMOMAB
     Indication: ACUTE LYMPHOCYTIC LEUKAEMIA
     Dosage: 28 UG, UNK
     Route: 041
     Dates: start: 20140715
  14. AERIUS [Concomitant]
     Active Substance: DESLORATADINE
     Dosage: 5 MG, UNK
     Route: 048
     Dates: start: 20140216
  15. ZOPICLONE [Concomitant]
     Active Substance: ZOPICLONE
     Dosage: 1 UNK, UNK
     Route: 048
     Dates: start: 20140215
  16. FASTURTEC [Concomitant]
     Active Substance: RASBURICASE
     Dosage: 12 MG, UNK
     Route: 042
     Dates: start: 20140716, end: 20140723
  17. ZOPHREN                            /00955301/ [Concomitant]
     Active Substance: ONDANSETRON
     Dosage: 8 MG, UNK
     Route: 042
     Dates: start: 20140715, end: 20140715
  18. PLATELETS [Concomitant]
     Active Substance: HUMAN PLATELET, ALLOGENIC
     Dosage: 1 UNK, UNK
     Route: 042
     Dates: start: 20140717, end: 20140802

REACTIONS (2)
  - Systemic inflammatory response syndrome [Recovered/Resolved]
  - Chest pain [Recovered/Resolved]

NARRATIVE: CASE EVENT DATE: 20140729
